FAERS Safety Report 5028373-X (Version None)
Quarter: 2006Q2

REPORT INFORMATION
  Report Type: 
  Country: None (occurrence: None)
  Receive Date: 20060503
  Receipt Date: 20060228
  Transmission Date: 20061013
  Serious: No
  Sender: FDA-Public Use
  Company Number: FACT0600121

PATIENT
  Age: 43 Year
  Sex: Female
  Weight: 58 kg

DRUGS (2)
  1. FACTIVE [Suspect]
     Indication: RESPIRATORY TRACT INFECTION BACTERIAL
     Dosage: 320 MG, QD, ORAL
     Route: 048
     Dates: start: 20060227, end: 20060227
  2. COUGH SYRUP (ANTIMONY POTASSIUM TARTRATE, PAPAVER SOMNIFERUM TINCTURE, [Concomitant]

REACTIONS (2)
  - PRURITUS GENERALISED [None]
  - RASH ERYTHEMATOUS [None]
